FAERS Safety Report 17676882 (Version 1)
Quarter: 2020Q2

REPORT INFORMATION
  Report Type: Spontaneous
  Country: US (occurrence: US)
  Receive Date: 20200416
  Receipt Date: 20200416
  Transmission Date: 20200714
  Serious: No
  Sender: FDA-Public Use
  Company Number: None

PATIENT
  Age: 48 Year
  Sex: Male

DRUGS (2)
  1. GEMCITABINE SDV 2GM/52.6ML [Suspect]
     Active Substance: GEMCITABINE HYDROCHLORIDE
     Dosage: ?          OTHER STRENGTH:2GM/52.6ML;?
     Route: 042
     Dates: start: 202004
  2. CISPLATIN. [Concomitant]
     Active Substance: CISPLATIN

REACTIONS (1)
  - Off label use [None]

NARRATIVE: CASE EVENT DATE: 20200416
